FAERS Safety Report 8772989 (Version 4)
Quarter: 2013Q1

REPORT INFORMATION
  Report Type: Report from Study
  Country: JP (occurrence: JP)
  Receive Date: 20120907
  Receipt Date: 20130123
  Transmission Date: 20140127
  Serious: Yes (Other)
  Sender: FDA-Public Use
  Company Number: JP-009507513-1209JPN001258

PATIENT
  Age: 58 Year
  Sex: Female
  Weight: 51 kg

DRUGS (14)
  1. PEGINTRON [Suspect]
     Indication: CHRONIC HEPATITIS C
     Dosage: 1.5 MICROGRAM PER KILOGRAM, QW
     Route: 058
     Dates: start: 20120724, end: 20120816
  2. PEGINTRON [Suspect]
     Dosage: 80 MICROGRAM PER KILOGRAM, QW
     Route: 058
     Dates: start: 20120827
  3. PEGINTRON [Suspect]
     Dosage: 1.5 MICROGRAM PER KILOGRAM, QW
     Route: 058
     Dates: end: 20130107
  4. REBETOL [Suspect]
     Indication: CHRONIC HEPATITIS C
     Dosage: 600 MG, QD
     Route: 048
     Dates: start: 20120724, end: 20120812
  5. REBETOL [Suspect]
     Dosage: 400 MG, QD
     Route: 048
     Dates: start: 20120813, end: 20120819
  6. REBETOL [Suspect]
     Dosage: 200 MG, QD
     Route: 048
     Dates: start: 20120827
  7. TELAVIC [Suspect]
     Indication: CHRONIC HEPATITIS C
     Dosage: 2250 MG, QD
     Route: 048
     Dates: start: 20120724, end: 20120805
  8. TELAVIC [Suspect]
     Dosage: 1500 MG, QD
     Route: 048
     Dates: start: 20120806, end: 20120819
  9. TELAVIC [Suspect]
     Dosage: 1500 MG, QD
     Route: 048
     Dates: start: 20120827, end: 20121001
  10. ALLELOCK [Suspect]
     Indication: ADVERSE EVENT
     Dosage: 10 MG, QD
     Route: 048
     Dates: start: 20120816, end: 20120817
  11. PAXIL [Concomitant]
     Dosage: 10 MG, QD
     Route: 048
  12. LOXONIN [Concomitant]
     Dosage: 60 MG/DAY, AS NEEDED
     Route: 048
     Dates: start: 20120724
  13. MAGNESIUM OXIDE [Concomitant]
     Indication: GASTROINTESTINAL DISORDER
     Dosage: 2 G PER DAY, AS NEEDED
     Route: 048
     Dates: start: 20120801
  14. MUCOSTA [Concomitant]
     Dosage: 100 MG PER DAY, AS NEEDED
     Route: 048
     Dates: start: 20120803

REACTIONS (3)
  - Erythema [Unknown]
  - Rash [Not Recovered/Not Resolved]
  - Erythema [Recovered/Resolved]
